FAERS Safety Report 11427863 (Version 2)
Quarter: 2015Q3

REPORT INFORMATION
  Report Type: Report from Study
  Country: BR (occurrence: BR)
  Receive Date: 20150828
  Receipt Date: 20150907
  Transmission Date: 20151125
  Serious: No
  Sender: FDA-Public Use
  Company Number: BR-ROCHE-1627317

PATIENT
  Sex: Female
  Weight: 60 kg

DRUGS (5)
  1. CHLOROQUINE [Concomitant]
     Active Substance: CHLOROQUINE\CHLOROQUINE PHOSPHATE
     Route: 065
  2. PREDNISONE. [Concomitant]
     Active Substance: PREDNISONE
     Route: 065
  3. PARACETAMOL [Concomitant]
     Active Substance: ACETAMINOPHEN
     Route: 065
  4. ACTEMRA [Suspect]
     Active Substance: TOCILIZUMAB
     Indication: RHEUMATOID ARTHRITIS
     Route: 042
     Dates: start: 20150227
  5. NIMESULIDE [Concomitant]
     Active Substance: NIMESULIDE
     Dosage: 1 TABLET/MORNING
     Route: 065

REACTIONS (1)
  - Back pain [Unknown]
